FAERS Safety Report 9101721 (Version 2)
Quarter: 2013Q1

REPORT INFORMATION
  Report Type: Spontaneous
  Country: ES (occurrence: ES)
  Receive Date: 20130218
  Receipt Date: 20130228
  Transmission Date: 20140127
  Serious: Yes (Other)
  Sender: FDA-Public Use
  Company Number: ES-AMGEN-ESPSP2013010177

PATIENT
  Age: 66 Year
  Sex: Female
  Weight: 68.7 kg

DRUGS (8)
  1. PROLIA [Suspect]
     Indication: OSTEOPOROSIS
     Dosage: 60 MG, Q6MO
     Route: 058
     Dates: start: 20120828, end: 20120828
  2. CALCIUM [Concomitant]
     Indication: OSTEOPOROSIS
     Dosage: 500 UNK, QD
     Route: 048
  3. VITAMIN D /00107901/ [Concomitant]
     Indication: OSTEOPOROSIS
     Dosage: 400 UNK, QD
     Route: 048
  4. ENALAPRIL [Concomitant]
     Indication: HYPERTENSION
     Dosage: UNK UNK, QD
     Route: 048
  5. SIMVASTATIN [Concomitant]
     Indication: HYPERCHOLESTEROLAEMIA
     Dosage: UNK UNK, QD
     Route: 048
  6. DOXIUM [Concomitant]
     Dosage: UNK UNK, BID
  7. ADIRO [Concomitant]
     Dosage: 1 DF, QD
  8. NATECAL D [Concomitant]
     Dosage: 1 DF, QHS

REACTIONS (4)
  - Oral mucosal blistering [Recovered/Resolved]
  - Mouth ulceration [Recovered/Resolved]
  - Pruritus generalised [Recovered/Resolved]
  - Sensitivity of teeth [Recovered/Resolved]
